FAERS Safety Report 4776180-5 (Version None)
Quarter: 2005Q3

REPORT INFORMATION
  Report Type: 
  Country: None (occurrence: None)
  Receive Date: 20050914
  Receipt Date: 20041015
  Transmission Date: 20060218
  Serious: Yes (Hospitalization)
  Sender: FDA-Public Use
  Company Number: 163-20785-04100424

PATIENT
  Age: 79 Year
  Sex: Male
  Weight: 80 kg

DRUGS (4)
  1. THALOMID [Suspect]
     Indication: NON-SMALL CELL LUNG CANCER
     Dosage: 200-1000MG, DAILY, ORAL
     Route: 048
     Dates: start: 20020410, end: 20020730
  2. PACLITAXEL [Suspect]
     Indication: NON-SMALL CELL LUNG CANCER
     Dosage: 225 MG/M2, OVER 3 HOURS ON DAY 1 Q21DAYS X2, INTRAVENOUS
     Route: 042
     Dates: start: 20020410, end: 20020501
  3. CARBOPLATIN [Suspect]
     Indication: NON-SMALL CELL LUNG CANCER
     Dosage: AUC=6, 15-30 MIN. ON DAY 1 Q21DAYS X2, INTRAVENOUS
     Route: 042
  4. RADIATION [Suspect]
     Indication: NON-SMALL CELL LUNG CANCER
     Dosage: 60GY, OVER 6 WEEKS BEGINNING DAYS 43-50,

REACTIONS (1)
  - PYREXIA [None]
